FAERS Safety Report 6146048-0 (Version None)
Quarter: 2009Q2

REPORT INFORMATION
  Report Type: 
  Country: None (occurrence: None)
  Receive Date: 20090406
  Receipt Date: 20090406
  Transmission Date: 20091009
  Serious: Yes (Death)
  Sender: FDA-Public Use
  Company Number: None

PATIENT
  Sex: Male
  Weight: 50 kg

DRUGS (14)
  1. CYCLOPHOSPHAMIDE [Suspect]
     Indication: PRIMITIVE NEUROECTODERMAL TUMOUR
     Dosage: 100 MG QD QD PO
     Route: 048
     Dates: start: 20090212, end: 20090315
  2. ETOPOSIDE [Suspect]
     Indication: PRIMITIVE NEUROECTODERMAL TUMOUR
     Dosage: 80 MG QD PO
     Route: 048
     Dates: start: 20090212, end: 20090315
  3. THALIDOMIDE [Suspect]
     Indication: PRIMITIVE NEUROECTODERMAL TUMOUR
     Dosage: 200 MG QD BID QD PO
     Route: 048
     Dates: start: 20090212, end: 20090315
  4. CELECOXIB [Suspect]
     Indication: PRIMITIVE NEUROECTODERMAL TUMOUR
     Dosage: 200 MG QD BID QD PO
     Route: 048
     Dates: start: 20090212, end: 20090315
  5. TRICOR [Suspect]
     Indication: PRIMITIVE NEUROECTODERMAL TUMOUR
     Dosage: 145 MG QD BID QD PO
     Route: 048
     Dates: start: 20090212, end: 20090315
  6. KEPPRA [Concomitant]
  7. DECADRON [Concomitant]
  8. ATIVAN [Concomitant]
  9. BENADRYL [Concomitant]
  10. SOLU-CORTEF [Concomitant]
  11. DAPSONE [Concomitant]
  12. PREVACID [Concomitant]
  13. PROZAC [Concomitant]
  14. DIASTAT [Concomitant]

REACTIONS (1)
  - DISEASE PROGRESSION [None]
